FAERS Safety Report 14355178 (Version 3)
Quarter: 2018Q2

REPORT INFORMATION
  Report Type: Report from Study
  Country: JP (occurrence: JP)
  Receive Date: 20180105
  Receipt Date: 20180406
  Transmission Date: 20180711
  Serious: Yes (Hospitalization)
  Sender: FDA-Public Use
  Company Number: JP-UCBSA-2017053231

PATIENT
  Age: 32 Year
  Sex: Female
  Weight: 32 kg

DRUGS (14)
  1. LEVETIRACETAM. [Suspect]
     Active Substance: LEVETIRACETAM
     Indication: PARTIAL SEIZURES WITH SECONDARY GENERALISATION
     Dosage: 500 MG, 2X/DAY (BID)
     Route: 041
     Dates: start: 20160518, end: 20160521
  2. LEVETIRACETAM. [Suspect]
     Active Substance: LEVETIRACETAM
     Dosage: 500 MG, ONCE DAILY (QD)
     Route: 041
     Dates: start: 20160528
  3. E KEPPRA [Suspect]
     Active Substance: LEVETIRACETAM
     Dosage: 500 MG, 2X/DAY (BID)
     Route: 048
     Dates: start: 20160521, end: 20160527
  4. DORMICUM [Concomitant]
     Indication: GENERALISED TONIC-CLONIC SEIZURE
     Dosage: 10 MG, DAILY
     Route: 065
     Dates: start: 20160516, end: 20160516
  5. SELENICA-R [Concomitant]
     Active Substance: VALPROATE SODIUM
     Indication: GENERALISED TONIC-CLONIC SEIZURE
     Dosage: 800 MG, UNK
     Route: 048
     Dates: end: 20160516
  6. PIPERACILIN/TAZOBACTAM [Concomitant]
     Active Substance: PIPERACILLIN SODIUM\TAZOBACTAM SODIUM
     Dosage: 3.375 TO 4.5 G DAILY
     Dates: start: 20160519, end: 20160526
  7. FENTANYL CITRATE. [Concomitant]
     Active Substance: FENTANYL CITRATE
     Indication: PRODUCT USED FOR UNKNOWN INDICATION
  8. DORMICUM [Concomitant]
     Dosage: 120 MG DAILY
     Dates: start: 20160517, end: 20160519
  9. HEPARIN SODIUM. [Concomitant]
     Active Substance: HEPARIN SODIUM
     Indication: PULMONARY EMBOLISM
     Dosage: 2500 TO 6000 DAILY
     Dates: start: 20160524
  10. FOSPHENYTOIN SODIUM. [Concomitant]
     Active Substance: FOSPHENYTOIN SODIUM
     Indication: GENERALISED TONIC-CLONIC SEIZURE
     Dosage: 675 MG, ONCE DAILY (QD)
     Route: 042
     Dates: start: 20160516, end: 20160516
  11. E KEPPRA [Suspect]
     Active Substance: LEVETIRACETAM
     Indication: PARTIAL SEIZURES WITH SECONDARY GENERALISATION
     Dosage: 200 MG, 2X/DAY (BID)
     Route: 048
     Dates: start: 20150408, end: 20160516
  12. ALEVIATIN [Concomitant]
     Active Substance: PHENYTOIN SODIUM
     Indication: GENERALISED TONIC-CLONIC SEIZURE
     Dosage: 230 MG, DAILY
     Route: 048
     Dates: end: 20160516
  13. CERCINE [Concomitant]
     Active Substance: DIAZEPAM
     Indication: GENERALISED TONIC-CLONIC SEIZURE
     Dosage: 0.2 MG, ONCE DAILY (QD)
     Dates: start: 20160516, end: 20160516
  14. CEFTRIAXONE. [Concomitant]
     Active Substance: CEFTRIAXONE
     Indication: PULMONARY EMBOLISM
     Dosage: 1 G, ONCE DAILY (QD)
     Dates: start: 20160524

REACTIONS (8)
  - Status epilepticus [Recovered/Resolved]
  - Pulmonary embolism [Recovered/Resolved]
  - Hepatic enzyme increased [Recovered/Resolved]
  - Urinary tract infection [Recovering/Resolving]
  - Renal impairment [Recovered/Resolved]
  - Platelet count decreased [Recovered/Resolved]
  - Diarrhoea [Recovered/Resolved]
  - Sepsis [Recovering/Resolving]

NARRATIVE: CASE EVENT DATE: 20160519
